FAERS Safety Report 8760168 (Version 1)
Quarter: 2012Q4

REPORT INFORMATION
  Report Type: 
  Country: US (occurrence: US)
  Receive Date: 20120829
  Receipt Date: 20120829
  Transmission Date: 20130627
  Serious: Yes (Other)
  Sender: FDA-Public Use
  Company Number: CHPA2012US018516

PATIENT
  Age: 88 Year
  Sex: Female

DRUGS (8)
  1. EXCEDRIN EXTRA STRENGTH [Suspect]
     Indication: ARTHRITIS
     Dosage: 1 DF, EVERY  MORNING
     Route: 048
     Dates: start: 1961
  2. EXCEDRIN EXTRA STRENGTH [Suspect]
     Dosage: 2 DF, Unk
     Route: 048
     Dates: start: 1954, end: 1961
  3. ECOTRIN [Concomitant]
     Dosage: Unk, Unk
  4. BAYER ASPIRIN [Concomitant]
     Dosage: Unk, Unk
  5. ADVIL                              /00044201/ [Concomitant]
     Dosage: Unk, Unk
  6. ALEVE                              /00256202/ [Concomitant]
     Dosage: Unk, Unk
  7. LIPITOR                                 /NET/ [Concomitant]
     Dosage: Unk, Unk
  8. DRUG THERAPY NOS [Concomitant]
     Dosage: Unk, Unk
     Dates: start: 2011

REACTIONS (7)
  - Hypertension [Not Recovered/Not Resolved]
  - Glaucoma [Not Recovered/Not Resolved]
  - Cataract [Recovered/Resolved]
  - Headache [Unknown]
  - Underdose [Unknown]
  - Expired drug administered [Unknown]
  - Incorrect drug administration duration [Unknown]
